FAERS Safety Report 8044278-4 (Version None)
Quarter: 2012Q1

REPORT INFORMATION
  Report Type: 
  Country: None (occurrence: None)
  Receive Date: 20120113
  Receipt Date: 20120112
  Transmission Date: 20120608
  Serious: Yes (Hospitalization, Other)
  Sender: FDA-Public Use
  Company Number: US-AMGEN-USASP2011065910

PATIENT
  Age: 63 Year
  Sex: Female
  Weight: 77.098 kg

DRUGS (2)
  1. ENBREL [Suspect]
     Indication: RHEUMATOID ARTHRITIS
     Dosage: 50 MG, 1 SYRINGE 2 TIMES/WK
     Route: 058
     Dates: start: 19991112
  2. METHOTREXATE [Concomitant]
     Indication: RHEUMATOID ARTHRITIS
     Dosage: 2.5 MG, QWK
     Route: 048
     Dates: end: 20111129

REACTIONS (8)
  - ATRIAL FIBRILLATION [None]
  - CORONARY ARTERY PERFORATION [None]
  - HAEMOPTYSIS [None]
  - VENTRICULAR TACHYCARDIA [None]
  - CARDIO-RESPIRATORY ARREST [None]
  - INJECTION SITE PAIN [None]
  - ACUTE RESPIRATORY FAILURE [None]
  - PULMONARY TOXICITY [None]
